FAERS Safety Report 9154847 (Version 1)
Quarter: 2013Q1

REPORT INFORMATION
  Report Type: Spontaneous
  Country: JP (occurrence: JP)
  Receive Date: 20130311
  Receipt Date: 20130311
  Transmission Date: 20140127
  Serious: Yes (Hospitalization, Other)
  Sender: FDA-Public Use
  Company Number: JP-AMGEN-JPNSP2013015905

PATIENT
  Age: 59 Year
  Sex: Female

DRUGS (3)
  1. ENBREL [Suspect]
     Indication: PRODUCT USED FOR UNKNOWN INDICATION
     Dosage: 25 MG, UNK
     Dates: start: 2006
  2. METHOTREXATE [Concomitant]
     Indication: RHEUMATOID VASCULITIS
     Dosage: UNK
  3. PREDNISOLONE [Concomitant]
     Indication: RHEUMATOID VASCULITIS
     Dosage: 5 MG, UNK

REACTIONS (4)
  - Pericarditis [Unknown]
  - Autoimmune haemolytic anaemia [Unknown]
  - Systemic lupus erythematosus [Unknown]
  - Tuberculosis [Unknown]
